FAERS Safety Report 7021215-2 (Version None)
Quarter: 2010Q3

REPORT INFORMATION
  Report Type: 
  Country: None (occurrence: None)
  Receive Date: 20100929
  Receipt Date: 20100917
  Transmission Date: 20110219
  Serious: Yes (Other)
  Sender: FDA-Public Use
  Company Number: AU-PFIZER INC-2010096209

PATIENT
  Sex: Female
  Weight: 62 kg

DRUGS (6)
  1. ZELDOX [Suspect]
     Indication: PSYCHOTIC DISORDER
     Dosage: 60 MG, UNK
     Route: 048
     Dates: start: 20100701
  2. ZELDOX [Suspect]
     Dosage: 80 MG, UNK
     Route: 048
  3. RISPERDAL [Concomitant]
     Indication: PSYCHOTIC DISORDER
     Dosage: 2 MG, 1X/DAY
     Route: 048
  4. LEXAPRO [Concomitant]
     Indication: DEPRESSION
     Dosage: 100 MG, UNK
     Route: 048
  5. ZOLPIDEM TARTRATE [Concomitant]
     Indication: INSOMNIA
     Dosage: 12.5 MG, 1X/DAY, NOCTE
     Route: 048
  6. NEULACTIL [Concomitant]
     Indication: AGITATION
     Dosage: 10 MG, 2X/DAY, PRN ONLY
     Route: 048

REACTIONS (3)
  - AKATHISIA [None]
  - HYPOAESTHESIA ORAL [None]
  - SWOLLEN TONGUE [None]
